FAERS Safety Report 15011391 (Version 1)
Quarter: 2018Q2

REPORT INFORMATION
  Report Type: Spontaneous
  Country: US (occurrence: US)
  Receive Date: 20180613
  Receipt Date: 20180613
  Transmission Date: 20180711
  Serious: No
  Sender: FDA-Public Use
  Company Number: None

PATIENT
  Age: 34 Year
  Sex: Male
  Weight: 56.25 kg

DRUGS (1)
  1. KRATOM [Suspect]
     Active Substance: MITRAGYNINE\HERBALS
     Indication: DRUG WITHDRAWAL SYNDROME
     Dosage: ?          QUANTITY:120 GRAMS;?
     Route: 048
     Dates: start: 20170820, end: 20180608

REACTIONS (4)
  - Suicidal ideation [None]
  - Drug dependence [None]
  - Anxiety [None]
  - Drug withdrawal syndrome [None]

NARRATIVE: CASE EVENT DATE: 20180608
